FAERS Safety Report 16880936 (Version 27)
Quarter: 2025Q1

REPORT INFORMATION
  Report Type: Spontaneous
  Country: US (occurrence: US)
  Receive Date: 20191003
  Receipt Date: 20250210
  Transmission Date: 20250409
  Serious: Yes (Other)
  Sender: PFIZER
  Company Number: US-PFIZER INC-2019426277

PATIENT
  Age: 80 Year
  Sex: Female
  Weight: 63 kg

DRUGS (12)
  1. PREMARIN [Suspect]
     Active Substance: ESTROGENS, CONJUGATED
     Indication: Hormone replacement therapy
     Dates: start: 1980
  2. PREMARIN [Suspect]
     Active Substance: ESTROGENS, CONJUGATED
     Indication: Hysterectomy
     Dosage: 6.625 MG, 1X/DAY
     Route: 048
     Dates: start: 198002
  3. PREMARIN [Suspect]
     Active Substance: ESTROGENS, CONJUGATED
     Indication: Hot flush
  4. PREMARIN [Suspect]
     Active Substance: ESTROGENS, CONJUGATED
     Indication: Affective disorder
  5. PREMARIN [Suspect]
     Active Substance: ESTROGENS, CONJUGATED
     Indication: Sleep disorder
  6. PREMARIN [Suspect]
     Active Substance: ESTROGENS, CONJUGATED
     Indication: Menopause
     Dosage: UNK, 1X/DAY
     Route: 048
  7. PREMARIN [Suspect]
     Active Substance: ESTROGENS, CONJUGATED
  8. PREMARIN [Suspect]
     Active Substance: ESTROGENS, CONJUGATED
     Dosage: 0.625, 1X/DAY
     Route: 048
     Dates: end: 202412
  9. LOTEPREDNOL ETABONATE [Concomitant]
     Active Substance: LOTEPREDNOL ETABONATE
     Indication: Blood pressure increased
     Dosage: UNK, 1X/DAY (5/10 ONCE A NIGHT)
  10. CHOLECALCIFEROL [Concomitant]
     Active Substance: CHOLECALCIFEROL
     Indication: Vitamin D decreased
     Dosage: 1000 IU, DAILY (1,000 IU DAILY, D3 25 MCG)
  11. KLONOPIN [Concomitant]
     Active Substance: CLONAZEPAM
     Indication: Anxiety
     Dosage: 0.5 MG, DAILY
  12. TRAMADOL [Concomitant]
     Active Substance: TRAMADOL
     Indication: Back pain
     Dosage: 150 MG, 3X/DAY

REACTIONS (29)
  - Joint injury [Unknown]
  - Condition aggravated [Unknown]
  - Knee arthroplasty [Unknown]
  - Sinus disorder [Unknown]
  - Intentional dose omission [Unknown]
  - Intentional product misuse [Unknown]
  - Product prescribing error [Unknown]
  - Feeling abnormal [Unknown]
  - Paranoia [Unknown]
  - Nervousness [Unknown]
  - Discomfort [Unknown]
  - Malaise [Unknown]
  - Crying [Unknown]
  - Confusional state [Unknown]
  - Emotional disorder [Unknown]
  - Thinking abnormal [Unknown]
  - Rhinorrhoea [Unknown]
  - Disturbance in attention [Unknown]
  - Fatigue [Unknown]
  - Dysgraphia [Unknown]
  - Nasopharyngitis [Not Recovered/Not Resolved]
  - Gait disturbance [Unknown]
  - Pain in extremity [Unknown]
  - Visual impairment [Unknown]
  - COVID-19 [Unknown]
  - Sluggishness [Unknown]
  - Therapeutic product effect delayed [Unknown]
  - Movement disorder [Unknown]
  - Speech disorder [Unknown]

NARRATIVE: CASE EVENT DATE: 20200201
